FAERS Safety Report 4737125-7 (Version None)
Quarter: 2005Q3

REPORT INFORMATION
  Report Type: 
  Country: None (occurrence: None)
  Receive Date: 20050728
  Receipt Date: 20050610
  Transmission Date: 20060218
  Serious: No
  Sender: FDA-Public Use
  Company Number: 200514932US

PATIENT
  Age: 83 Year
  Sex: Male

DRUGS (1)
  1. TELITHROMYCIN (KETEK) TABLETS [Suspect]
     Indication: BRONCHITIS
     Dosage: 800 MG QD PO
     Route: 048
     Dates: start: 20050530

REACTIONS (2)
  - DRUG INEFFECTIVE [None]
  - URTICARIA [None]
